FAERS Safety Report 8883416 (Version 1)
Quarter: 2012Q4

REPORT INFORMATION
  Report Type: 
  Country: GB (occurrence: GB)
  Receive Date: 20121102
  Receipt Date: 20121102
  Transmission Date: 20130627
  Serious: Yes (Other)
  Sender: FDA-Public Use
  Company Number: GB-ALLERGAN-1214758US

PATIENT
  Age: 74 Year
  Sex: Female

DRUGS (3)
  1. PRED FORTE [Suspect]
     Indication: CATARACT
     Dosage: UNK
     Route: 047
     Dates: start: 20121001
  2. CHLORAMPHENICOL [Concomitant]
     Indication: DRUG USE FOR UNKNOWN INDICATION
  3. THYROXINE SODIUM [Concomitant]
     Indication: DRUG USE FOR UNKNOWN INDICATION
     Dosage: 100 ?g, UNK

REACTIONS (3)
  - Dyspnoea [Not Recovered/Not Resolved]
  - Fatigue [Not Recovered/Not Resolved]
  - Off label use [Unknown]
